FAERS Safety Report 6501263-9 (Version None)
Quarter: 2009Q4

REPORT INFORMATION
  Report Type: 
  Country: None (occurrence: None)
  Receive Date: 20091216
  Receipt Date: 20091201
  Transmission Date: 20100525
  Serious: Yes (Death)
  Sender: FDA-Public Use
  Company Number: US-PFIZER INC-2009309648

PATIENT
  Sex: Male
  Weight: 104.31 kg

DRUGS (8)
  1. MORPHINE SULFATE [Suspect]
     Dosage: UNK
     Route: 065
  2. CODEINE POLYSULFONATE [Suspect]
     Dosage: UNK
     Route: 065
  3. HYDROCODONE HYDROCHLORIDE [Suspect]
     Dosage: UNK
     Route: 065
  4. HYDROMORPHONE [Suspect]
     Dosage: UNK
     Route: 065
  5. CANNABIS [Suspect]
     Dosage: UNK
     Route: 065
  6. SERTRALINE HCL [Suspect]
     Dosage: UNK
     Route: 065
  7. DIAZEPAM [Suspect]
     Dosage: UNK
     Route: 065
  8. TEMAZEPAM [Suspect]
     Dosage: UNK
     Route: 065

REACTIONS (1)
  - ACCIDENTAL OVERDOSE [None]
